FAERS Safety Report 25511502 (Version 1)
Quarter: 2025Q3

REPORT INFORMATION
  Report Type: Report from Study
  Country: US (occurrence: US)
  Receive Date: 20250703
  Receipt Date: 20250703
  Transmission Date: 20251021
  Serious: Yes (Other)
  Sender: ABBVIE
  Company Number: US-ABBVIE-6352444

PATIENT
  Age: 48 Year
  Sex: Male

DRUGS (1)
  1. UBRELVY [Suspect]
     Active Substance: UBROGEPANT
     Indication: Product used for unknown indication
     Route: 048
     Dates: start: 20230101

REACTIONS (3)
  - Cerebrovascular disorder [Unknown]
  - Migraine [Unknown]
  - Gait inability [Unknown]

NARRATIVE: CASE EVENT DATE: 20250601
